FAERS Safety Report 4889952-3 (Version None)
Quarter: 2006Q1

REPORT INFORMATION
  Report Type: 
  Country: None (occurrence: None)
  Receive Date: 20060123
  Receipt Date: 20060123
  Transmission Date: 20060701
  Serious: Yes (Other)
  Sender: FDA-Public Use
  Company Number: None

PATIENT
  Age: 28 Year
  Sex: Female
  Weight: 81.6475 kg

DRUGS (2)
  1. RELACORE CARTER-REED COMPANY [Suspect]
     Indication: WEIGHT DECREASED
     Dosage: 2 CAPSULS 3 TIMES A DAY PO
     Route: 048
     Dates: start: 20060109, end: 20060110
  2. ADVIL [Concomitant]

REACTIONS (7)
  - ANXIETY [None]
  - FATIGUE [None]
  - HEADACHE [None]
  - HEART RATE INCREASED [None]
  - HYPERHIDROSIS [None]
  - MEDICATION ERROR [None]
  - RHINORRHOEA [None]
